FAERS Safety Report 9612024 (Version 2)
Quarter: 2013Q4

REPORT INFORMATION
  Report Type: Spontaneous
  Country: US (occurrence: US)
  Receive Date: 20131010
  Receipt Date: 20131216
  Transmission Date: 20140711
  Serious: No
  Sender: FDA-Public Use
  Company Number: US-BAYER-2013-121738

PATIENT
  Age: 68 Year
  Sex: Female
  Weight: 66 kg

DRUGS (5)
  1. ALEVE CAPLET [Suspect]
     Indication: TENDON RUPTURE
     Dosage: 1 DF, BID
     Route: 048
     Dates: start: 20130912, end: 20131004
  2. ALEVE CAPLET [Suspect]
     Indication: TENDON RUPTURE
     Dosage: UNK
  3. SYNTHROID [Concomitant]
     Indication: HYPOTHYROIDISM
     Dosage: 25 ?G, QOD
  4. SYNTHROID [Concomitant]
     Indication: HYPOTHYROIDISM
     Dosage: 50 ?G, QOD
  5. VITAMIN C [Concomitant]
     Dosage: 1 DF, QD

REACTIONS (10)
  - Hypoaesthesia [Not Recovered/Not Resolved]
  - Blood pressure increased [Recovered/Resolved]
  - Pollakiuria [Recovered/Resolved]
  - Balance disorder [Recovered/Resolved]
  - Vision blurred [Not Recovered/Not Resolved]
  - Tinnitus [Not Recovered/Not Resolved]
  - Disturbance in attention [Recovered/Resolved]
  - Incorrect drug administration duration [None]
  - Off label use [Recovered/Resolved]
  - Vertigo [Recovered/Resolved]
